FAERS Safety Report 15312446 (Version 1)
Quarter: 2018Q3

REPORT INFORMATION
  Report Type: Spontaneous
  Country: FR (occurrence: FR)
  Receive Date: 20180823
  Receipt Date: 20180823
  Transmission Date: 20181010
  Serious: Yes (Other)
  Sender: FDA-Public Use
  Company Number: FR-GLAXOSMITHKLINE-B0132807A

PATIENT
  Age: 23 Year
  Sex: Female

DRUGS (6)
  1. EPIVIR [Suspect]
     Active Substance: LAMIVUDINE
     Indication: PROPHYLAXIS
  2. EPIVIR [Suspect]
     Active Substance: LAMIVUDINE
     Indication: INJURY ASSOCIATED WITH DEVICE
     Route: 048
     Dates: start: 20001110, end: 20001207
  3. STAVUDINE. [Suspect]
     Active Substance: STAVUDINE
     Indication: INJURY ASSOCIATED WITH DEVICE
     Route: 048
     Dates: start: 20001110, end: 20001207
  4. STAVUDINE. [Suspect]
     Active Substance: STAVUDINE
     Indication: PROPHYLAXIS
  5. NEVIRAPINE. [Suspect]
     Active Substance: NEVIRAPINE
     Indication: INJURY ASSOCIATED WITH DEVICE
     Route: 048
     Dates: start: 20001110, end: 20001113
  6. NEVIRAPINE. [Suspect]
     Active Substance: NEVIRAPINE
     Indication: PROPHYLAXIS

REACTIONS (7)
  - Nausea [Unknown]
  - Tinnitus [Recovering/Resolving]
  - Dizziness [Unknown]
  - Ototoxicity [Recovering/Resolving]
  - Deafness bilateral [Recovering/Resolving]
  - Diarrhoea [Unknown]
  - Deafness neurosensory [Recovering/Resolving]
